FAERS Safety Report 6381999-3 (Version None)
Quarter: 2009Q3

REPORT INFORMATION
  Report Type: 
  Country: None (occurrence: None)
  Receive Date: 20090925
  Receipt Date: 20090914
  Transmission Date: 20100115
  Serious: Yes (Hospitalization)
  Sender: FDA-Public Use
  Company Number: GXKR2009US10233

PATIENT
  Age: 78 Year
  Sex: Male

DRUGS (1)
  1. HYDRALAZINE HCL [Suspect]
     Dosage: UP TO 75 MG, BID

REACTIONS (16)
  - ANTI-NEUTROPHIL CYTOPLASMIC ANTIBODY POSITIVE VASCULITIS [None]
  - ARTERIAL THROMBOSIS [None]
  - ARTHRITIS [None]
  - COMPLEMENT FACTOR C3 DECREASED [None]
  - COMPLEMENT FACTOR C4 DECREASED [None]
  - CYANOSIS [None]
  - FINGER AMPUTATION [None]
  - GANGRENE [None]
  - HAEMATURIA [None]
  - HYPOCOMPLEMENTAEMIA [None]
  - LIVEDO RETICULARIS [None]
  - PERIPHERAL ISCHAEMIA [None]
  - PROTEINURIA [None]
  - RASH [None]
  - SKIN ULCER [None]
  - VENOUS THROMBOSIS [None]
